FAERS Safety Report 14957807 (Version 3)
Quarter: 2018Q3

REPORT INFORMATION
  Report Type: Report from Study
  Country: JP (occurrence: JP)
  Receive Date: 20180531
  Receipt Date: 20180806
  Transmission Date: 20181010
  Serious: Yes (Other)
  Sender: FDA-Public Use
  Company Number: JP-JNJFOC-20180532514

PATIENT
  Age: 69 Year
  Sex: Male
  Weight: 61 kg

DRUGS (19)
  1. VELCADE [Suspect]
     Active Substance: BORTEZOMIB
     Indication: PLASMA CELL MYELOMA
     Route: 058
     Dates: start: 20180116, end: 20180410
  2. ZOSYN [Concomitant]
     Active Substance: PIPERACILLIN SODIUM\TAZOBACTAM SODIUM
     Indication: INFECTION
     Route: 065
     Dates: start: 20180207, end: 20180209
  3. NEUTROGIN [Concomitant]
     Active Substance: LENOGRASTIM
     Indication: BONE MARROW FAILURE
     Route: 065
     Dates: start: 20180404, end: 20180404
  4. SAXIZON [Concomitant]
     Active Substance: HYDROCORTISONE SODIUM SUCCINATE
     Indication: INFUSION RELATED REACTION
     Route: 065
  5. PICOSULFATE NA [Concomitant]
     Active Substance: SODIUM PICOSULFATE
     Indication: CONSTIPATION
     Route: 048
     Dates: start: 20180121
  6. DARZALEX [Suspect]
     Active Substance: DARATUMUMAB
     Indication: PLASMA CELL MYELOMA
     Route: 041
     Dates: start: 20180403
  7. CANCIDAS [Concomitant]
     Active Substance: CASPOFUNGIN ACETATE
     Indication: INFECTION
     Route: 065
  8. AMITIZA [Concomitant]
     Active Substance: LUBIPROSTONE
     Indication: CONSTIPATION
     Route: 048
  9. MAGNESIUM OXIDE. [Concomitant]
     Active Substance: MAGNESIUM OXIDE
     Indication: CONSTIPATION
     Route: 048
  10. DARZALEX [Suspect]
     Active Substance: DARATUMUMAB
     Indication: PLASMA CELL MYELOMA
     Route: 041
     Dates: start: 20180116, end: 20180327
  11. MEROPENEM. [Concomitant]
     Active Substance: MEROPENEM
     Indication: INFECTION
     Route: 065
     Dates: start: 20180209, end: 20180217
  12. CANCIDAS [Concomitant]
     Active Substance: CASPOFUNGIN ACETATE
     Indication: INFECTION
     Route: 065
  13. DENOSUMAB [Concomitant]
     Active Substance: DENOSUMAB
     Route: 065
  14. FILGRASTIM BS [Concomitant]
     Active Substance: FILGRASTIM
     Indication: BONE MARROW FAILURE
     Route: 065
     Dates: start: 20180121, end: 20180326
  15. LEVOFLOXACIN HEMIHYDRATE [Concomitant]
     Active Substance: LEVOFLOXACIN
     Indication: INFECTION
     Route: 065
     Dates: start: 20180203, end: 20180207
  16. SORBITOL. [Concomitant]
     Active Substance: SORBITOL
     Indication: CONSTIPATION
     Route: 065
     Dates: start: 20180125, end: 20180126
  17. DEXAMETHASONE. [Suspect]
     Active Substance: DEXAMETHASONE
     Indication: PLASMA CELL MYELOMA
     Route: 065
     Dates: start: 20180116, end: 20180509
  18. CANCIDAS [Concomitant]
     Active Substance: CASPOFUNGIN ACETATE
     Indication: INFECTION
     Route: 065
  19. CANCIDAS [Concomitant]
     Active Substance: CASPOFUNGIN ACETATE
     Indication: INFECTION
     Route: 065

REACTIONS (7)
  - Hot flush [Recovered/Resolved]
  - Bone marrow failure [Recovering/Resolving]
  - Sneezing [Recovered/Resolved]
  - Constipation [Recovering/Resolving]
  - Infusion related reaction [Recovered/Resolved]
  - Infection [Recovering/Resolving]
  - Diarrhoea [Recovering/Resolving]

NARRATIVE: CASE EVENT DATE: 20180116
